FAERS Safety Report 7355387-7 (Version None)
Quarter: 2011Q1

REPORT INFORMATION
  Report Type: 
  Country: None (occurrence: None)
  Receive Date: 20110316
  Receipt Date: 20110303
  Transmission Date: 20110831
  Serious: Yes (Other)
  Sender: FDA-Public Use
  Company Number: DE-ROCHE-765153

PATIENT
  Sex: Male
  Weight: 75 kg

DRUGS (1)
  1. TAMIFLU [Suspect]
     Indication: INFLUENZA
     Route: 048
     Dates: start: 20110209, end: 20110212

REACTIONS (4)
  - TACHYCARDIA [None]
  - ABDOMINAL PAIN UPPER [None]
  - DIZZINESS [None]
  - VISUAL IMPAIRMENT [None]
